FAERS Safety Report 5511712-0 (Version None)
Quarter: 2007Q4

REPORT INFORMATION
  Report Type: 
  Country: None (occurrence: None)
  Receive Date: 20071109
  Receipt Date: 20071031
  Transmission Date: 20080405
  Serious: Yes (Other)
  Sender: FDA-Public Use
  Company Number: FR-ABBOTT-07P-056-0423033-00

PATIENT
  Sex: Male

DRUGS (5)
  1. DEPAKENE [Suspect]
     Indication: EPILEPSY
     Route: 048
     Dates: start: 20030201
  2. DEPAKENE [Suspect]
     Route: 048
     Dates: end: 20040701
  3. PIRACETAM [Concomitant]
     Indication: COGNITIVE DISORDER
     Route: 048
  4. NICARDIPINE HYDROCHLORIDE [Concomitant]
     Indication: HYPERTENSION
     Route: 048
  5. LAMOTRIGINE [Concomitant]
     Indication: EPILEPSY
     Route: 048

REACTIONS (7)
  - ABNORMAL BEHAVIOUR [None]
  - BALANCE DISORDER [None]
  - DEMENTIA [None]
  - EPILEPSY [None]
  - MEMORY IMPAIRMENT [None]
  - MOOD ALTERED [None]
  - PSEUDODEMENTIA [None]
